FAERS Safety Report 14201932 (Version 1)
Quarter: 2017Q4

REPORT INFORMATION
  Report Type: Spontaneous
  Country: US (occurrence: US)
  Receive Date: 20171117
  Receipt Date: 20171117
  Transmission Date: 20180321
  Serious: Yes (Other)
  Sender: FDA-Public Use
  Company Number: US-SA-2017SA194947

PATIENT
  Age: 66 Year
  Sex: Male
  Weight: 78.92 kg

DRUGS (4)
  1. TEMAZEPAM. [Concomitant]
     Active Substance: TEMAZEPAM
     Indication: INSOMNIA
     Route: 065
     Dates: start: 2014
  2. DUPIXENT [Suspect]
     Active Substance: DUPILUMAB
     Indication: ECZEMA
     Route: 058
     Dates: start: 2017, end: 2017
  3. DUPIXENT [Suspect]
     Active Substance: DUPILUMAB
     Indication: ECZEMA
     Route: 058
     Dates: start: 20170415
  4. CIALIS [Concomitant]
     Active Substance: TADALAFIL
     Indication: MICTURITION URGENCY
     Route: 065
     Dates: start: 2015

REACTIONS (6)
  - Injection site swelling [Recovering/Resolving]
  - Injection site induration [Recovering/Resolving]
  - Nasal congestion [Recovered/Resolved]
  - Lower respiratory tract infection [Recovered/Resolved]
  - Oropharyngeal pain [Recovered/Resolved]
  - Injection site pain [Recovering/Resolving]

NARRATIVE: CASE EVENT DATE: 2017
